FAERS Safety Report 18963332 (Version 1)
Quarter: 2021Q1

REPORT INFORMATION
  Report Type: Spontaneous
  Country: KR (occurrence: KR)
  Receive Date: 20210303
  Receipt Date: 20210303
  Transmission Date: 20210420
  Serious: Yes (Other)
  Sender: FDA-Public Use
  Company Number: KR-TAKEDA-2021TUS013448

PATIENT
  Age: 78 Year
  Sex: Female

DRUGS (2)
  1. CLOPIDOGREL [Suspect]
     Active Substance: CLOPIDOGREL BISULFATE
     Indication: CEREBRAL INFARCTION
     Dosage: UNK UNK, QD
     Route: 048
     Dates: start: 20181122
  2. BRINTELLIX [Suspect]
     Active Substance: VORTIOXETINE HYDROBROMIDE
     Indication: CEREBRAL INFARCTION
     Dosage: UNK UNK, QD
     Route: 048
     Dates: start: 20181122

REACTIONS (4)
  - Nausea [Recovered/Resolved]
  - Product use in unapproved indication [Unknown]
  - Mental impairment [Recovered/Resolved]
  - Dizziness [Recovered/Resolved]

NARRATIVE: CASE EVENT DATE: 20181122
